FAERS Safety Report 6525782-4 (Version None)
Quarter: 2010Q1

REPORT INFORMATION
  Report Type: 
  Country: None (occurrence: None)
  Receive Date: 20100104
  Receipt Date: 20091229
  Transmission Date: 20100710
  Serious: Yes (Hospitalization)
  Sender: FDA-Public Use
  Company Number: A0774611A

PATIENT
  Age: 63 Year
  Sex: Female

DRUGS (9)
  1. PAXIL CR [Suspect]
     Indication: BIPOLAR DISORDER
     Dosage: 25MG PER DAY
     Route: 048
     Dates: start: 19910101
  2. VALTREX [Suspect]
     Dosage: 1G TWICE PER DAY
     Route: 048
     Dates: start: 19820101
  3. SEROQUEL [Suspect]
     Indication: BIPOLAR DISORDER
     Route: 065
     Dates: start: 20040101
  4. ACYCLOVIR [Suspect]
     Indication: GENITAL HERPES
     Dates: start: 19780101
  5. FLAXSEED OIL [Concomitant]
     Dosage: 1000MG PER DAY
  6. KLONOPIN [Concomitant]
     Dosage: .5MG TWICE PER DAY
  7. COZAAR [Concomitant]
  8. THYROLAR [Concomitant]
  9. LITHIUM CARBONATE [Concomitant]

REACTIONS (11)
  - BRONCHITIS [None]
  - CATARACT [None]
  - DRUG DEPENDENCE [None]
  - DRUG INEFFECTIVE [None]
  - EMOTIONAL DISORDER [None]
  - HYPOMANIA [None]
  - INSOMNIA [None]
  - MALAISE [None]
  - PNEUMONIA [None]
  - POST HERPETIC NEURALGIA [None]
  - PYREXIA [None]
